FAERS Safety Report 7434984-4 (Version None)
Quarter: 2011Q2

REPORT INFORMATION
  Report Type: 
  Country: None (occurrence: None)
  Receive Date: 20110418
  Receipt Date: 20110409
  Transmission Date: 20111010
  Serious: Yes (Hospitalization)
  Sender: FDA-Public Use
  Company Number: IPC201104-000561

PATIENT
  Age: 46 Year
  Sex: Male

DRUGS (4)
  1. HYDROCHLOROTHIAZIDE [Suspect]
     Indication: HYPERTENSION
     Dosage: 12.5 MG/D
  2. IRBESARTAN [Suspect]
     Indication: HYPERTENSION
     Dosage: 300 MG/D
  3. QUETIAPINE [Suspect]
     Indication: AGITATION
     Dosage: 50 MG BID
  4. ESCITALOPRAM [Suspect]
     Indication: AGITATION
     Dosage: 10 MG IN THE  MORNING

REACTIONS (3)
  - HYPOTENSION [None]
  - DRUG INTERACTION [None]
  - FALL [None]
